FAERS Safety Report 6681216-0 (Version None)
Quarter: 2010Q2

REPORT INFORMATION
  Report Type: 
  Country: None (occurrence: None)
  Receive Date: 20100414
  Receipt Date: 20091205
  Transmission Date: 20101027
  Serious: No
  Sender: FDA-Public Use
  Company Number: US-KINGPHARMUSA00001-K200901540

PATIENT
  Sex: Female
  Weight: 117.91 kg

DRUGS (2)
  1. SKELAXIN [Suspect]
     Indication: BACK PAIN
     Dosage: 800 MG, TID
     Route: 048
     Dates: start: 20091101, end: 20091101
  2. PERCOCET [Concomitant]
     Dosage: UNK

REACTIONS (2)
  - PAIN [None]
  - URTICARIA [None]
